FAERS Safety Report 12299581 (Version 1)
Quarter: 2016Q2

REPORT INFORMATION
  Report Type: Spontaneous
  Country: US (occurrence: None)
  Receive Date: 20160422
  Receipt Date: 20160422
  Transmission Date: 20160815
  Serious: No
  Sender: FDA-Public Use
  Company Number: None

PATIENT
  Age: 75 Year
  Sex: Female

DRUGS (1)
  1. AFINITOR [Suspect]
     Active Substance: EVEROLIMUS

REACTIONS (5)
  - Dysgeusia [None]
  - Fatigue [None]
  - Decreased appetite [None]
  - Blood urine present [None]
  - Stomatitis [None]

NARRATIVE: CASE EVENT DATE: 20160421
